FAERS Safety Report 5947077-X (Version None)
Quarter: 2008Q4

REPORT INFORMATION
  Report Type: 
  Country: None (occurrence: None)
  Receive Date: 20081110
  Receipt Date: 20081104
  Transmission Date: 20090506
  Serious: Yes (Life-Threatening, Hospitalization, Other)
  Sender: FDA-Public Use
  Company Number: CA-ABBOTT-08P-028-0485775-00

PATIENT
  Sex: Female
  Weight: 47.67 kg

DRUGS (1)
  1. HUMIRA [Suspect]
     Indication: RHEUMATOID ARTHRITIS
     Route: 058
     Dates: start: 20070330

REACTIONS (9)
  - CARDIAC ARREST [None]
  - CARDIOVASCULAR DISORDER [None]
  - DYSPNOEA [None]
  - FALL [None]
  - HEART VALVE STENOSIS [None]
  - PELVIC FRACTURE [None]
  - PLEURAL EFFUSION [None]
  - UPPER LIMB FRACTURE [None]
  - WEIGHT DECREASED [None]
